FAERS Safety Report 14955820 (Version 2)
Quarter: 2018Q2

REPORT INFORMATION
  Report Type: Report from Study
  Country: MX (occurrence: MX)
  Receive Date: 20180531
  Receipt Date: 20180626
  Transmission Date: 20180711
  Serious: Yes (Death, Hospitalization, Other)
  Sender: FDA-Public Use
  Company Number: MX-AMGEN-MEXSL2018073161

PATIENT
  Age: 47 Year
  Sex: Female

DRUGS (3)
  1. KYPROLIS [Suspect]
     Active Substance: CARFILZOMIB
     Indication: PLASMA CELL LEUKAEMIA
     Dosage: 60 MG, UNK
     Route: 042
     Dates: start: 2018
  2. KYPROLIS [Suspect]
     Active Substance: CARFILZOMIB
     Dosage: 110 MG, UNK
     Route: 042
     Dates: start: 20180524, end: 20180524
  3. DARATUMUMAB [Concomitant]
     Active Substance: DARATUMUMAB
     Indication: PLASMA CELL LEUKAEMIA
     Dosage: 800 MG, QWK
     Dates: start: 20180425, end: 20180523

REACTIONS (4)
  - Respiratory arrest [Fatal]
  - Acute hepatic failure [Fatal]
  - Off label use [Unknown]
  - Plasma cell leukaemia [Fatal]

NARRATIVE: CASE EVENT DATE: 2018
